FAERS Safety Report 22151824 (Version 1)
Quarter: 2023Q1

REPORT INFORMATION
  Report Type: Spontaneous
  Country: US (occurrence: None)
  Receive Date: 20230329
  Receipt Date: 20230329
  Transmission Date: 20230417
  Serious: No
  Sender: FDA-Public Use
  Company Number: None

PATIENT
  Age: 59 Year
  Sex: Male
  Weight: 98 kg

DRUGS (4)
  1. SOFOSBUVIR\VELPATASVIR [Suspect]
     Active Substance: SOFOSBUVIR\VELPATASVIR
     Dosage: 1 TOT- TOTAL DAILY ORAL
     Route: 048
     Dates: start: 20220812, end: 20221114
  2. AMLODIPINE [Concomitant]
  3. GABAPENTIN [Concomitant]
  4. RISPERIDONE [Concomitant]

REACTIONS (1)
  - Blood HCV RNA below assay limit [None]

NARRATIVE: CASE EVENT DATE: 20230209
